FAERS Safety Report 13345040 (Version 5)
Quarter: 2018Q2

REPORT INFORMATION
  Report Type: Spontaneous
  Country: ES (occurrence: ES)
  Receive Date: 20170317
  Receipt Date: 20180416
  Transmission Date: 20180711
  Serious: Yes (Life-Threatening, Other)
  Sender: FDA-Public Use
  Company Number: ES-009507513-1703ESP006491

PATIENT
  Age: 58 Year
  Sex: Male

DRUGS (5)
  1. SIMEPREVIR [Interacting]
     Active Substance: SIMEPREVIR
     Indication: HEPATITIS C
     Dosage: 150 MG/DAY
  2. SIMEPREVIR [Interacting]
     Active Substance: SIMEPREVIR
  3. RIBAVIRIN. [Suspect]
     Active Substance: RIBAVIRIN
     Indication: HEPATITIS C
     Dosage: 800 MG/DAY
     Route: 048
  4. SOFOSBUVIR [Interacting]
     Active Substance: SOFOSBUVIR
  5. SOFOSBUVIR [Interacting]
     Active Substance: SOFOSBUVIR
     Indication: HEPATITIS C
     Dosage: 400 MG/DAY

REACTIONS (7)
  - Agranulocytosis [Recovered/Resolved]
  - Drug interaction [Unknown]
  - Pancytopenia [Recovered/Resolved]
  - Bone marrow failure [Unknown]
  - Anaemia [Recovered/Resolved]
  - Febrile neutropenia [Recovered/Resolved]
  - Haematotoxicity [Recovered/Resolved]
